FAERS Safety Report 24980563 (Version 2)
Quarter: 2025Q1

REPORT INFORMATION
  Report Type: Spontaneous
  Country: LT (occurrence: LT)
  Receive Date: 20250218
  Receipt Date: 20250221
  Transmission Date: 20250409
  Serious: Yes (Other)
  Sender: ABBVIE
  Company Number: LT-ABBVIE-6112161

PATIENT
  Age: 34 Year
  Sex: Female

DRUGS (5)
  1. RINVOQ [Suspect]
     Active Substance: UPADACITINIB
     Indication: Axial spondyloarthritis
     Dosage: 15 MG
     Route: 048
     Dates: start: 20240617, end: 20240729
  2. GABAPENTIN [Concomitant]
     Active Substance: GABAPENTIN
     Indication: Fibromyalgia
     Dates: start: 20240617
  3. MELOXICAM [Concomitant]
     Active Substance: MELOXICAM
     Indication: Axial spondyloarthritis
     Route: 048
     Dates: start: 20240315, end: 20240819
  4. FENTANYL [Concomitant]
     Active Substance: FENTANYL
     Indication: Pain
     Dosage: 12 MICROGRAM PER HOUR
     Route: 062
     Dates: start: 20240419
  5. PREDNISOLONE [Concomitant]
     Active Substance: PREDNISOLONE
     Indication: Arthritis
     Route: 048
     Dates: start: 20230726, end: 20240819

REACTIONS (4)
  - Diarrhoea [Recovered/Resolved]
  - Drug ineffective [Recovered/Resolved]
  - Arthropathy [Not Recovered/Not Resolved]
  - Escherichia urinary tract infection [Unknown]

NARRATIVE: CASE EVENT DATE: 20240101
